FAERS Safety Report 10233245 (Version 2)
Quarter: 2014Q4

REPORT INFORMATION
  Report Type: Spontaneous
  Country: US (occurrence: US)
  Receive Date: 20140612
  Receipt Date: 20141002
  Transmission Date: 20150528
  Serious: Yes (Hospitalization)
  Sender: FDA-Public Use
  Company Number: US-BAYER-2014-085704

PATIENT
  Age: 22 Year
  Sex: Female
  Weight: 121.9 kg

DRUGS (1)
  1. MIRENA [Suspect]
     Active Substance: LEVONORGESTREL
     Indication: CONTRACEPTION
     Dosage: 20 MCG/24HR, CONT
     Route: 015
     Dates: start: 200909, end: 20101002

REACTIONS (4)
  - Off label use [None]
  - Uterine perforation [None]
  - Genital haemorrhage [None]
  - Abdominal pain [None]

NARRATIVE: CASE EVENT DATE: 2009
